FAERS Safety Report 12242103 (Version 2)
Quarter: 2018Q1

REPORT INFORMATION
  Report Type: Report from Study
  Country: CA (occurrence: CA)
  Receive Date: 20160406
  Receipt Date: 20180102
  Transmission Date: 20180508
  Serious: Yes (Hospitalization, Other)
  Sender: FDA-Public Use
  Company Number: CA-BEH-2016061087

PATIENT
  Age: 61 Year
  Sex: Female

DRUGS (3)
  1. HIZENTRA [Suspect]
     Active Substance: HUMAN IMMUNOGLOBULIN G
     Indication: PRIMARY IMMUNODEFICIENCY SYNDROME
     Dosage: PUSH, ONGOING. ENROLLED IN PROGRAM 2012.
     Route: 058
  2. HIZENTRA [Suspect]
     Active Substance: HUMAN IMMUNOGLOBULIN G
     Indication: ADULT T-CELL LYMPHOMA/LEUKAEMIA
     Dosage: PUSH, ONGOING. ENROLLED IN PROGRAM 2012.
     Route: 058
  3. HIZENTRA [Suspect]
     Active Substance: HUMAN IMMUNOGLOBULIN G
     Dosage: 5 G QW
     Route: 058
     Dates: start: 2012

REACTIONS (11)
  - Weight decreased [Unknown]
  - Amnesia [Unknown]
  - Large granular lymphocytosis [Recovering/Resolving]
  - Liver disorder [Unknown]
  - Encephalitis [Unknown]
  - Neutropenia [Unknown]
  - Incisional hernia [Unknown]
  - Dyspnoea [Unknown]
  - Metastases to spleen [Unknown]
  - Pleural effusion [Unknown]
  - Splenomegaly [Unknown]

NARRATIVE: CASE EVENT DATE: 2017
